FAERS Safety Report 7275866-0 (Version None)
Quarter: 2011Q1

REPORT INFORMATION
  Report Type: 
  Country: None (occurrence: None)
  Receive Date: 20110204
  Receipt Date: 20110202
  Transmission Date: 20110831
  Serious: Yes (Life-Threatening, Hospitalization)
  Sender: FDA-Public Use
  Company Number: BG-TEVA-XM22-04-265583GER

PATIENT
  Sex: Female
  Weight: 44 kg

DRUGS (27)
  1. CISPLATIN [Suspect]
     Route: 041
     Dates: start: 20101208, end: 20101208
  2. ENALAPRIL MALEATE [Concomitant]
     Indication: HYPERTENSION
     Route: 048
     Dates: start: 20050101
  3. DEXTROSE [Concomitant]
     Indication: DECREASED APPETITE
     Route: 042
     Dates: start: 20101122, end: 20101128
  4. ETOPOSIDE [Suspect]
     Indication: NON-SMALL CELL LUNG CANCER
     Route: 041
     Dates: start: 20101118, end: 20101120
  5. ETOPOSIDE [Suspect]
     Route: 041
     Dates: start: 20101208, end: 20101210
  6. TIENAM (IMIPENEM + CILASTATIN) [Concomitant]
     Indication: FEBRILE NEUTROPENIA
     Route: 042
     Dates: start: 20110120, end: 20110123
  7. RINGERS INJECTION IN PLASTIC CONTAINER [Concomitant]
     Indication: DECREASED APPETITE
     Route: 042
     Dates: start: 20101122, end: 20101128
  8. ONDANSETRON [Concomitant]
     Indication: NAUSEA
     Route: 042
     Dates: start: 20110116, end: 20110123
  9. ONDANSETRON [Concomitant]
     Indication: VOMITING
  10. DEXTROSE [Concomitant]
     Route: 042
     Dates: start: 20101212, end: 20101217
  11. ETOPOSIDE [Suspect]
     Route: 041
     Dates: start: 20110111, end: 20110113
  12. XM22 PEG-FILGRASTIM [Suspect]
     Indication: COLONY STIMULATING FACTOR PROPHYLAXIS
     Dosage: BLINDED XM22 6 MG OR PLACEBO
     Route: 058
     Dates: start: 20101121, end: 20101121
  13. XM22 PEG-FILGRASTIM [Suspect]
     Dosage: BLINDED XM22 6 MG OR PLACEBO
     Route: 058
     Dates: start: 20101211, end: 20101211
  14. CISPLATIN [Suspect]
     Indication: NON-SMALL CELL LUNG CANCER
     Route: 041
     Dates: start: 20101118, end: 20101118
  15. DEXTROSE [Concomitant]
     Route: 042
     Dates: start: 20110116, end: 20110123
  16. RINGERS INJECTION IN PLASTIC CONTAINER [Concomitant]
     Route: 042
     Dates: start: 20110116, end: 20110123
  17. METOCLOPRAMIDE [Concomitant]
     Indication: NAUSEA
     Route: 042
     Dates: start: 20101122, end: 20101128
  18. METHYLPREDNISOLONE [Concomitant]
     Indication: THROMBOCYTOPENIA
     Route: 042
     Dates: start: 20110120, end: 20110123
  19. NICERGOLINE [Concomitant]
     Indication: HYPERTENSION
     Route: 048
     Dates: start: 20050101
  20. AMIKACIN [Concomitant]
     Indication: FEBRILE NEUTROPENIA
     Route: 042
     Dates: start: 20110120, end: 20110123
  21. XM22 PEG-FILGRASTIM [Suspect]
     Dosage: BLINDED XM22 6 MG OR PLACEBO
     Route: 058
     Dates: start: 20110114, end: 20110114
  22. CISPLATIN [Suspect]
     Route: 041
     Dates: start: 20110111, end: 20110111
  23. PERFALGAN (PARACETAMOL) [Concomitant]
     Indication: FEBRILE NEUTROPENIA
     Route: 042
     Dates: start: 20110120, end: 20110123
  24. ATENOLOL [Concomitant]
     Indication: HYPERTENSION
     Route: 048
     Dates: start: 20050101
  25. METOCLOPRAMIDE [Concomitant]
     Indication: VOMITING
     Route: 048
     Dates: start: 20101211, end: 20101217
  26. METOCLOPRAMIDE [Concomitant]
     Route: 048
     Dates: start: 20110114, end: 20110123
  27. KALINOR [Concomitant]
     Indication: HYPOKALAEMIA
     Route: 048
     Dates: start: 20110126, end: 20110130

REACTIONS (1)
  - ELECTROLYTE IMBALANCE [None]
